FAERS Safety Report 14932355 (Version 1)
Quarter: 2018Q2

REPORT INFORMATION
  Report Type: Spontaneous
  Country: US (occurrence: US)
  Receive Date: 20180524
  Receipt Date: 20180524
  Transmission Date: 20180711
  Serious: No
  Sender: FDA-Public Use
  Company Number: US-ASTRAZENECA-2018SE58343

PATIENT
  Age: 9809 Day
  Sex: Female
  Weight: 72.6 kg

DRUGS (1)
  1. SYMBICORT [Suspect]
     Active Substance: BUDESONIDE\FORMOTEROL FUMARATE DIHYDRATE
     Indication: ASTHMA
     Dosage: 160/4.5 MCG, 2 PUFFS TWICE A DAY
     Route: 055
     Dates: start: 201802

REACTIONS (5)
  - Acne cystic [Not Recovered/Not Resolved]
  - Sinus congestion [Not Recovered/Not Resolved]
  - Mucosal inflammation [Not Recovered/Not Resolved]
  - Rhinorrhoea [Recovering/Resolving]
  - Nasal inflammation [Not Recovered/Not Resolved]

NARRATIVE: CASE EVENT DATE: 20180320
